FAERS Safety Report 9857940 (Version 1)
Quarter: 2014Q1

REPORT INFORMATION
  Report Type: Spontaneous
  Country: US (occurrence: US)
  Receive Date: 20140131
  Receipt Date: 20140131
  Transmission Date: 20141002
  Serious: No
  Sender: FDA-Public Use
  Company Number: US-PFIZER INC-2014028011

PATIENT
  Sex: Female

DRUGS (5)
  1. LYRICA [Suspect]
     Dosage: 25 MG, 3X/DAY
  2. LYRICA [Suspect]
     Dosage: 75 MG, 3X/DAY
  3. LYRICA [Suspect]
     Dosage: 8.3 MG, 3X/DAY
  4. LYRICA [Suspect]
     Dosage: 12.5 MG, 3X/DAY
  5. LYRICA [Suspect]
     Dosage: UNK

REACTIONS (9)
  - Intentional drug misuse [Unknown]
  - Local swelling [Unknown]
  - Joint swelling [Unknown]
  - Swelling face [Unknown]
  - Blood glucose increased [Unknown]
  - Nausea [Unknown]
  - Paraesthesia [Unknown]
  - Pain [Unknown]
  - Malaise [Unknown]
